FAERS Safety Report 9044133 (Version 1)
Quarter: 2013Q1

REPORT INFORMATION
  Report Type: Report from Study
  Country: US (occurrence: US)
  Receive Date: 20130130
  Receipt Date: 20130130
  Transmission Date: 20140127
  Serious: No
  Sender: FDA-Public Use
  Company Number: US-ABBOTT-12P-163-0932075-00

PATIENT
  Age: 60 Year
  Sex: Female

DRUGS (8)
  1. HUMIRA 40 MG/0.8 ML PEN [Suspect]
     Indication: RHEUMATOID ARTHRITIS
     Dates: start: 20120329
  2. METHOTREXATE [Concomitant]
     Indication: PRODUCT USED FOR UNKNOWN INDICATION
  3. IRON [Concomitant]
     Indication: ANAEMIA
  4. CALCIUM/VITAMIN D [Concomitant]
     Indication: SUPPLEMENTATION THERAPY
  5. FOLIC ACID [Concomitant]
     Indication: PRODUCT USED FOR UNKNOWN INDICATION
  6. LIPITOR [Concomitant]
     Indication: BLOOD CHOLESTEROL INCREASED
  7. DIOVAN [Concomitant]
     Indication: HYPERTENSION
     Dosage: 160/25 DAILY
  8. METFORMIN [Concomitant]
     Indication: DIABETES MELLITUS

REACTIONS (6)
  - Drug ineffective [Not Recovered/Not Resolved]
  - Oedema peripheral [Recovering/Resolving]
  - Local swelling [Recovering/Resolving]
  - Injection site pain [Recovering/Resolving]
  - Local swelling [Not Recovered/Not Resolved]
  - Paraesthesia [Not Recovered/Not Resolved]
